FAERS Safety Report 25111221 (Version 5)
Quarter: 2025Q3

REPORT INFORMATION
  Report Type: Report from Study
  Country: CA (occurrence: CA)
  Receive Date: 20250324
  Receipt Date: 20250806
  Transmission Date: 20251020
  Serious: Yes (Other)
  Sender: TAKEDA
  Company Number: CA-TAKEDA-2025TUS027917

PATIENT
  Age: 73 Year
  Sex: Male

DRUGS (13)
  1. VEDOLIZUMAB [Suspect]
     Active Substance: VEDOLIZUMAB
     Indication: Colitis ulcerative
  2. VEDOLIZUMAB [Suspect]
     Active Substance: VEDOLIZUMAB
  3. VEDOLIZUMAB [Suspect]
     Active Substance: VEDOLIZUMAB
  4. VEDOLIZUMAB [Suspect]
     Active Substance: VEDOLIZUMAB
     Indication: Colitis ulcerative
     Dosage: UNK UNK, Q2WEEKS
  5. Salofalk [Concomitant]
  6. LITHIUM CARBONATE [Concomitant]
     Active Substance: LITHIUM CARBONATE
  7. ATORVASTATIN [Concomitant]
     Active Substance: ATORVASTATIN
  8. EZETIMIBE [Concomitant]
     Active Substance: EZETIMIBE
  9. SYNTHROID [Concomitant]
     Active Substance: LEVOTHYROXINE SODIUM
  10. DEXAMETHASONE [Concomitant]
     Active Substance: DEXAMETHASONE
  11. PERINDOPRIL [Concomitant]
     Active Substance: PERINDOPRIL
  12. MOMETASONE [Concomitant]
     Active Substance: MOMETASONE
  13. PANTOPRAZOLE [Concomitant]
     Active Substance: PANTOPRAZOLE

REACTIONS (7)
  - Haematochezia [Recovered/Resolved]
  - Colitis ulcerative [Recovering/Resolving]
  - Mucous stools [Recovered/Resolved]
  - Diarrhoea [Not Recovered/Not Resolved]
  - Off label use [Unknown]
  - Abdominal pain [Not Recovered/Not Resolved]
  - Flatulence [Recovered/Resolved]

NARRATIVE: CASE EVENT DATE: 20250731
